FAERS Safety Report 7882184-6 (Version None)
Quarter: 2011Q4

REPORT INFORMATION
  Report Type: 
  Country: None (occurrence: None)
  Receive Date: 20111101
  Receipt Date: 20110610
  Transmission Date: 20120403
  Serious: No
  Sender: FDA-Public Use
  Company Number: US-AMGEN-USASP2011030091

PATIENT
  Age: 55 Year
  Sex: Male
  Weight: 70.295 kg

DRUGS (3)
  1. HUMIRA [Concomitant]
  2. SIMPONI [Concomitant]
  3. ENBREL [Suspect]
     Indication: RHEUMATOID ARTHRITIS
     Route: 058

REACTIONS (1)
  - DRUG INEFFECTIVE [None]
